FAERS Safety Report 4745821-0 (Version None)
Quarter: 2005Q3

REPORT INFORMATION
  Report Type: 
  Country: None (occurrence: None)
  Receive Date: 20050816
  Receipt Date: 20041103
  Transmission Date: 20060218
  Serious: No
  Sender: FDA-Public Use
  Company Number: US-BRISTOL-MYERS SQUIBB COMPANY-12758462

PATIENT

DRUGS (1)
  1. MUCOMYST [Suspect]
     Route: 051

REACTIONS (1)
  - INCORRECT ROUTE OF DRUG ADMINISTRATION [None]
